FAERS Safety Report 8112478-0 (Version None)
Quarter: 2012Q1

REPORT INFORMATION
  Report Type: 
  Country: None (occurrence: None)
  Receive Date: 20120203
  Receipt Date: 20120131
  Transmission Date: 20120608
  Serious: Yes (Hospitalization)
  Sender: FDA-Public Use
  Company Number: FR-ROCHE-1031306

PATIENT
  Sex: Female

DRUGS (11)
  1. PEGASYS [Suspect]
     Indication: HEPATITIS C
     Route: 058
     Dates: start: 20110914, end: 20111207
  2. COPEGUS [Suspect]
     Indication: HEPATITIS C
     Route: 048
     Dates: start: 20110914, end: 20111208
  3. FLUOXETINE [Concomitant]
  4. LEVOTHYROXINE SODIUM [Concomitant]
  5. PRAVASTATIN [Concomitant]
  6. INCIVO [Suspect]
     Indication: HEPATITIS C
     Route: 048
     Dates: start: 20110914, end: 20111208
  7. AMLODIPINE BESYLATE [Concomitant]
  8. NEORECORMON [Concomitant]
  9. SPIRONOLACTONE [Concomitant]
  10. HYDROCORTISONE [Concomitant]
  11. FUROSEMIDE [Concomitant]

REACTIONS (2)
  - HAEMOLYTIC ANAEMIA [None]
  - RENAL FAILURE ACUTE [None]
